FAERS Safety Report 5596935-7 (Version None)
Quarter: 2007Q4

REPORT INFORMATION
  Report Type: 
  Country: None (occurrence: None)
  Receive Date: 20071220
  Receipt Date: 20070919
  Transmission Date: 20080405
  Serious: Yes (Hospitalization)
  Sender: FDA-Public Use
  Company Number: A03200705678

PATIENT
  Age: 64 Year
  Sex: Female

DRUGS (5)
  1. AMBIEN [Suspect]
     Indication: OVERDOSE
     Dosage: 1000 MG ONCE - ORAL
     Route: 048
     Dates: start: 20070918, end: 20070918
  2. HYDROXYCHLOROQUINE [Concomitant]
  3. FENTANYL [Concomitant]
  4. MUSCLE RELAXANTS [Concomitant]
  5. ANTI-INFLAMMATORY [Concomitant]

REACTIONS (2)
  - INTENTIONAL OVERDOSE [None]
  - LETHARGY [None]
